FAERS Safety Report 7603421-9 (Version None)
Quarter: 2011Q3

REPORT INFORMATION
  Report Type: 
  Country: None (occurrence: None)
  Receive Date: 20110712
  Receipt Date: 20110712
  Transmission Date: 20111222
  Serious: Yes (Hospitalization)
  Sender: FDA-Public Use
  Company Number: PHHO2008CA12930

PATIENT
  Sex: Male
  Weight: 74 kg

DRUGS (9)
  1. EXELON [Suspect]
     Dosage: 10 CM2 PATCH
     Route: 062
     Dates: start: 20080221, end: 20081027
  2. CELEXA [Concomitant]
     Indication: ANXIETY DISORDER
  3. FLEXERIL [Concomitant]
     Indication: BACK PAIN
  4. LIPITOR [Concomitant]
     Indication: DYSLIPIDAEMIA
  5. NSAID'S [Suspect]
     Indication: BACK PAIN
  6. NO TREATMENT RECEIVED [Suspect]
     Indication: DEMENTIA ALZHEIMER'S TYPE
     Dosage: NO TREATMENT
  7. EXELON [Suspect]
     Indication: DEMENTIA ALZHEIMER'S TYPE
     Dosage: 5 CM2 PATCH
     Route: 062
     Dates: start: 20080124, end: 20080220
  8. NAPROSYN [Concomitant]
     Indication: BACK PAIN
  9. PANTOPRAZOLE [Concomitant]

REACTIONS (12)
  - DUODENAL ULCER [None]
  - HAEMOGLOBIN DECREASED [None]
  - INTERNATIONAL NORMALISED RATIO DECREASED [None]
  - COAGULATION FACTOR DECREASED [None]
  - HAEMORRHAGE [None]
  - PALPITATIONS [None]
  - THERAPEUTIC EMBOLISATION [None]
  - SYNCOPE [None]
  - DIZZINESS [None]
  - BACK PAIN [None]
  - UPPER GASTROINTESTINAL HAEMORRHAGE [None]
  - MELAENA [None]
